FAERS Safety Report 20738983 (Version 1)
Quarter: 2022Q2

REPORT INFORMATION
  Report Type: Spontaneous
  Country: IT (occurrence: IT)
  Receive Date: 20220422
  Receipt Date: 20220422
  Transmission Date: 20220721
  Serious: Yes (Other)
  Sender: FDA-Public Use
  Company Number: IT-Accord-261380

PATIENT
  Age: 29 Year
  Sex: Female

DRUGS (3)
  1. CISPLATIN [Suspect]
     Active Substance: CISPLATIN
     Indication: Adenocarcinoma metastatic
  2. PEMETREXED [Suspect]
     Active Substance: PEMETREXED
     Indication: Adenocarcinoma metastatic
     Dosage: EVERY 3 WEEKS
  3. PEMBROLIZUMAB [Suspect]
     Active Substance: PEMBROLIZUMAB
     Indication: Adenocarcinoma metastatic
     Dosage: EVERY 3 WEEKS

REACTIONS (2)
  - Tubulointerstitial nephritis [Unknown]
  - Nephropathy [Unknown]
